FAERS Safety Report 20566270 (Version 2)
Quarter: 2023Q1

REPORT INFORMATION
  Report Type: Report from Study
  Country: DE (occurrence: None)
  Receive Date: 20220308
  Receipt Date: 20230119
  Transmission Date: 20230417
  Serious: Yes (Other)
  Sender: FDA-Public Use
  Company Number: 2022A095496

PATIENT
  Sex: Female

DRUGS (8)
  1. FASENRA [Suspect]
     Active Substance: BENRALIZUMAB
     Indication: Asthma
     Route: 058
  2. PANTOPRAZOLE SODIUM [Concomitant]
     Active Substance: PANTOPRAZOLE SODIUM
  3. ATORVASTATIN [Concomitant]
     Active Substance: ATORVASTATIN
  4. PREDNISONE ACETATE [Concomitant]
     Active Substance: PREDNISONE ACETATE
  5. ASPIRIN [Concomitant]
     Active Substance: ASPIRIN
  6. FLUTICASONE PROPIONATE\SALMETEROL XINAFOATE [Concomitant]
     Active Substance: FLUTICASONE PROPIONATE\SALMETEROL XINAFOATE
  7. CHOLECALCIFEROL [Concomitant]
     Active Substance: CHOLECALCIFEROL
  8. KALINOR [Concomitant]

REACTIONS (2)
  - Blood creatinine abnormal [Not Recovered/Not Resolved]
  - Total bile acids increased [Not Recovered/Not Resolved]

NARRATIVE: CASE EVENT DATE: 20220216
